FAERS Safety Report 12357503 (Version 1)
Quarter: 2016Q2

REPORT INFORMATION
  Report Type: Spontaneous
  Country: BR (occurrence: BR)
  Receive Date: 20160512
  Receipt Date: 20160512
  Transmission Date: 20160815
  Serious: Yes (Hospitalization, Other)
  Sender: FDA-Public Use
  Company Number: BR-AMGEN-BRASP2016048100

PATIENT
  Age: 75 Year
  Sex: Female
  Weight: 80 kg

DRUGS (5)
  1. AGILISIN [Concomitant]
     Dosage: UNK
  2. TYLEX                              /00020001/ [Concomitant]
     Indication: PAIN
     Dosage: UNK, AS NEEDED
  3. PREDSIM [Concomitant]
     Active Substance: PREDNISOLONE
     Dosage: UNK
  4. ENBREL [Suspect]
     Active Substance: ETANERCEPT
     Indication: RHEUMATOID ARTHRITIS
     Dosage: 50 MG, ONCE WEEKLY
     Route: 058
     Dates: start: 201601, end: 2016
  5. ARADOIS [Concomitant]
     Active Substance: LOSARTAN POTASSIUM
     Dosage: 250 MG, DAILY (2 TABLETS OF 125 MG)

REACTIONS (1)
  - Thrombosis [Not Recovered/Not Resolved]

NARRATIVE: CASE EVENT DATE: 20160222
